FAERS Safety Report 8486648 (Version 2)
Quarter: 2012Q4

REPORT INFORMATION
  Report Type: Spontaneous
  Country: DE (occurrence: None)
  Receive Date: 20120326
  Receipt Date: 20120814
  Transmission Date: 20130627
  Serious: Yes (Death)
  Sender: FDA-Public Use
  Company Number: CIP-2012-00100

PATIENT

DRUGS (2)
  1. CARBOPLATIN [Suspect]
     Indication: OVARIAN CANCER
     Dosage: AUC 6 (DAY 1 OF A 21 DAY CYCLE), 30 MINUTE INFUSION
  2. PEMETREXED [Suspect]
     Indication: OVARIAN CANCER
     Dosage: 500 MG/M2 (DAY 1 OF A 21 DAY CYCLE), 10 MINUTE INFUSION

REACTIONS (1)
  - MULTI-ORGAN FAILURE [None]
